FAERS Safety Report 15129644 (Version 1)
Quarter: 2018Q3

REPORT INFORMATION
  Report Type: Spontaneous
  Country: US (occurrence: US)
  Receive Date: 20180711
  Receipt Date: 20180711
  Transmission Date: 20181010
  Serious: Yes (Other)
  Sender: FDA-Public Use
  Company Number: US-SAKK-2018SA183781AA

PATIENT
  Age: 56 Year
  Sex: Female

DRUGS (1)
  1. LANTUS SOLOSTAR [Suspect]
     Active Substance: INSULIN GLARGINE
     Indication: DIABETES MELLITUS
     Dosage: 35 U, QD
     Route: 065

REACTIONS (4)
  - Device issue [Recovered/Resolved]
  - Cerebrovascular accident [Recovered/Resolved]
  - Drug dose omission [Recovered/Resolved]
  - Needle issue [Recovered/Resolved]
